FAERS Safety Report 5381136-8 (Version None)
Quarter: 2007Q3

REPORT INFORMATION
  Report Type: 
  Country: None (occurrence: None)
  Receive Date: 20070706
  Receipt Date: 20070627
  Transmission Date: 20080115
  Serious: Yes (Other)
  Sender: FDA-Public Use
  Company Number: DE-GENENTECH-243187

PATIENT
  Sex: Male
  Weight: 62 kg

DRUGS (2)
  1. MABTHERA [Suspect]
     Indication: MANTLE CELL LYMPHOMA
     Dosage: 700 MG, UNK
     Route: 042
     Dates: start: 20070110
  2. BENDAMUSTINE [Concomitant]
     Indication: MANTLE CELL LYMPHOMA
     Dosage: 160 MG, QD
     Route: 042
     Dates: start: 20070111

REACTIONS (5)
  - DIARRHOEA [None]
  - GUILLAIN-BARRE SYNDROME [None]
  - PNEUMONIA [None]
  - PYREXIA [None]
  - RASH [None]
